FAERS Safety Report 10256464 (Version 1)
Quarter: 2014Q2

REPORT INFORMATION
  Report Type: Spontaneous
  Country: US (occurrence: US)
  Receive Date: 20140624
  Receipt Date: 20140624
  Transmission Date: 20141212
  Serious: No
  Sender: FDA-Public Use
  Company Number: US-ZOGENIX, INC.-2012ZX000212

PATIENT
  Age: 65 Year
  Sex: Female
  Weight: 72.64 kg

DRUGS (5)
  1. SUMAVEL DOSEPRO [Suspect]
     Indication: MIGRAINE
     Dates: start: 20120606, end: 20120606
  2. SUMATRIPTAN [Concomitant]
     Indication: MIGRAINE
     Route: 048
  3. ULTRAM [Concomitant]
     Indication: PAIN
     Route: 048
  4. APAP BUTALBITAL [Concomitant]
     Indication: PAIN
     Route: 048
  5. PROZAC [Concomitant]
     Indication: DEPRESSION
     Route: 048

REACTIONS (2)
  - Head discomfort [Recovered/Resolved]
  - Device malfunction [Recovered/Resolved]
